FAERS Safety Report 7852754 (Version 5)
Quarter: 2012Q4

REPORT INFORMATION
  Report Type: 
  Country: GB (occurrence: GB)
  Receive Date: 20110311
  Receipt Date: 20120913
  Transmission Date: 20130627
  Serious: Yes (Other)
  Sender: FDA-Public Use
  Company Number: GB-MERCK-1101GBR00055

PATIENT
  Age: 24 None

DRUGS (5)
  1. ISENTRESS [Suspect]
     Dosage: 800 mg, qd
     Route: 048
  2. EPZICOM [Suspect]
     Dosage: 1 DF, qd
     Route: 048
  3. VIREAD [Suspect]
     Dosage: 245 mg, qd
     Route: 048
  4. REYATAZ [Suspect]
     Dosage: 300 mg, qd
     Route: 048
  5. NORVIR [Suspect]
     Dosage: 100 mg, qd
     Route: 048

REACTIONS (6)
  - Premature labour [Recovered/Resolved]
  - Placental insufficiency [Unknown]
  - Placenta praevia [Unknown]
  - Placental disorder [Unknown]
  - Live birth [Unknown]
  - Maternal exposure during pregnancy [Recovered/Resolved]
